FAERS Safety Report 9958763 (Version 1)
Quarter: 2014Q1

REPORT INFORMATION
  Report Type: Spontaneous
  Country: US (occurrence: None)
  Receive Date: 20140228
  Receipt Date: 20140228
  Transmission Date: 20141002
  Serious: Yes (Other)
  Sender: FDA-Public Use
  Company Number: None

PATIENT
  Age: 81 Year
  Sex: Female

DRUGS (1)
  1. GAMMAGARD [Suspect]
     Route: 042
     Dates: start: 20140225

REACTIONS (2)
  - Erythema [None]
  - Pruritus [None]
